FAERS Safety Report 5884890-1 (Version None)
Quarter: 2008Q3

REPORT INFORMATION
  Report Type: 
  Country: None (occurrence: None)
  Receive Date: 20080916
  Receipt Date: 20080904
  Transmission Date: 20090109
  Serious: Yes (Hospitalization)
  Sender: FDA-Public Use
  Company Number: FR-ROCHE-584756

PATIENT
  Sex: Female

DRUGS (7)
  1. CELLCEPT [Suspect]
     Indication: DRUG USE FOR UNKNOWN INDICATION
     Route: 065
     Dates: end: 20080326
  2. CELLCEPT [Suspect]
     Route: 065
     Dates: start: 20080429
  3. CELLCEPT [Suspect]
     Route: 065
  4. INIPOMP [Concomitant]
     Dosage: TAKEN DAILY.
  5. SOLUPRED [Concomitant]
     Dosage: TAKEN DAILY.
  6. NEORAL [Concomitant]
  7. PENTACARINAT [Concomitant]

REACTIONS (1)
  - AGRANULOCYTOSIS [None]
